FAERS Safety Report 4515726-9 (Version None)
Quarter: 2004Q4

REPORT INFORMATION
  Report Type: 
  Country: None (occurrence: None)
  Receive Date: 20041118
  Receipt Date: 20041104
  Transmission Date: 20050328
  Serious: Yes (Hospitalization)
  Sender: FDA-Public Use
  Company Number: 200410355BBE

PATIENT
  Sex: Female
  Weight: 58.9676 kg

DRUGS (2)
  1. GAMUNEX [Suspect]
     Indication: IMMUNODEFICIENCY COMMON VARIABLE
     Dosage: SEE IMAGE
     Route: 042
     Dates: start: 20041015
  2. GAMUNEX [Suspect]
     Dates: start: 20041015

REACTIONS (4)
  - DRUG INEFFECTIVE [None]
  - MENINGITIS ASEPTIC [None]
  - VIRAL INFECTION [None]
  - VOMITING [None]
